FAERS Safety Report 6717575-X (Version None)
Quarter: 2010Q2

REPORT INFORMATION
  Report Type: 
  Country: None (occurrence: None)
  Receive Date: 20100507
  Receipt Date: 20100507
  Transmission Date: 20101027
  Serious: Yes (Hospitalization)
  Sender: FDA-Public Use
  Company Number: None

PATIENT
  Age: 77 Year
  Sex: Female
  Weight: 47.1741 kg

DRUGS (1)
  1. ULTRAM ER [Suspect]
     Indication: BACK PAIN
     Dosage: 200MG QID PO
     Route: 048

REACTIONS (6)
  - AGGRESSION [None]
  - DELIRIUM [None]
  - DRUG WITHDRAWAL SYNDROME [None]
  - HYPERHIDROSIS [None]
  - INCOHERENT [None]
  - SEROTONIN SYNDROME [None]
